FAERS Safety Report 6252453-4 (Version None)
Quarter: 2009Q3

REPORT INFORMATION
  Report Type: 
  Country: None (occurrence: None)
  Receive Date: 20090701
  Receipt Date: 20090629
  Transmission Date: 20100115
  Serious: Yes (Other)
  Sender: FDA-Public Use
  Company Number: DE-BRISTOL-MYERS SQUIBB COMPANY-14606529

PATIENT
  Age: 59 Year
  Sex: Female
  Weight: 74 kg

DRUGS (4)
  1. ORENCIA [Suspect]
     Indication: RHEUMATOID ARTHRITIS
     Route: 042
     Dates: start: 20090106, end: 20090303
  2. IBUPROFEN [Concomitant]
     Dosage: TABS
     Route: 048
  3. PARACETAMOL TABS [Concomitant]
     Route: 048
  4. PREDNISOLONE [Concomitant]
     Dosage: PREDNISOLONE 5 MG TABS
     Route: 048
     Dates: start: 20040601

REACTIONS (1)
  - TRANSIENT ISCHAEMIC ATTACK [None]
